FAERS Safety Report 4444338-0 (Version None)
Quarter: 2004Q3

REPORT INFORMATION
  Report Type: 
  Country: None (occurrence: None)
  Receive Date: 20040813
  Receipt Date: 20031103
  Transmission Date: 20050211
  Serious: Yes (Other)
  Sender: FDA-Public Use
  Company Number: US-JNJFOC-20040702016

PATIENT
  Age: 9 Year
  Sex: Male
  Weight: 31.2982 kg

DRUGS (2)
  1. IBUPROFEN [Suspect]
     Indication: DRUG USE FOR UNKNOWN INDICATION
     Dosage: 250 MG, 1 IN  8 HOUR , ORAL
     Route: 048
     Dates: start: 20031030, end: 20031102
  2. CHILDRENS TYLENOL (SUSPENSION) ACETAMINOPHEN [Concomitant]

REACTIONS (2)
  - CONDITION AGGRAVATED [None]
  - VOMITING [None]
